FAERS Safety Report 6418191-X (Version None)
Quarter: 2009Q4

REPORT INFORMATION
  Report Type: 
  Country: None (occurrence: None)
  Receive Date: 20091028
  Receipt Date: 20091015
  Transmission Date: 20100525
  Serious: Yes (Other)
  Sender: FDA-Public Use
  Company Number: US-ELI_LILLY_AND_COMPANY-US200910004384

PATIENT
  Sex: Female

DRUGS (7)
  1. SYMBYAX [Suspect]
     Indication: BIPOLAR I DISORDER
     Dosage: 1 D/F, DAILY (1/D)
     Dates: start: 20090224
  2. SYMBYAX [Suspect]
     Dosage: 1 D/F, DAILY (1/D)
  3. SYMBYAX [Suspect]
     Dosage: 1 D/F, DAILY (1/D)
  4. SYMBYAX [Suspect]
     Dosage: 1 D/F, DAILY (1/D)
  5. KLONOPIN [Concomitant]
  6. TRAZODONE [Concomitant]
  7. TOPAMAX [Concomitant]
     Dates: start: 20090101

REACTIONS (1)
  - WEIGHT INCREASED [None]
